FAERS Safety Report 11740966 (Version 2)
Quarter: 2015Q4

REPORT INFORMATION
  Report Type: Report from Study
  Country: PL (occurrence: PL)
  Receive Date: 20151115
  Receipt Date: 20151204
  Transmission Date: 20160304
  Serious: Yes (Other)
  Sender: FDA-Public Use
  Company Number: PL-KADMON PHARMACEUTICALS, LLC-KAD201511-003908

PATIENT

DRUGS (3)
  1. VICTRELIS [Suspect]
     Active Substance: BOCEPREVIR
     Indication: CHRONIC HEPATITIS C
     Route: 048
  2. RIBAVIRIN. [Suspect]
     Active Substance: RIBAVIRIN
     Indication: CHRONIC HEPATITIS C
     Route: 048
  3. PEGINTRON [Suspect]
     Active Substance: PEGINTERFERON ALFA-2B
     Indication: CHRONIC HEPATITIS C
     Dosage: INJECTION
     Route: 058

REACTIONS (1)
  - Renal impairment [Unknown]
